FAERS Safety Report 7131428-7 (Version None)
Quarter: 2010Q4

REPORT INFORMATION
  Report Type: 
  Country: None (occurrence: None)
  Receive Date: 20101201
  Receipt Date: 20101118
  Transmission Date: 20110411
  Serious: Yes (Life-Threatening)
  Sender: FDA-Public Use
  Company Number: JP-CELGENEUS-087-21880-10112085

PATIENT
  Sex: Female
  Weight: 33 kg

DRUGS (7)
  1. REVLIMID [Suspect]
     Indication: MYELODYSPLASTIC SYNDROME
     Route: 048
     Dates: start: 20100909, end: 20100918
  2. TAKEPRON [Concomitant]
     Indication: PROPHYLAXIS
     Route: 048
     Dates: start: 20100326, end: 20100101
  3. MIYA BM [Concomitant]
     Indication: PROPHYLAXIS
     Route: 048
     Dates: start: 20100220, end: 20101010
  4. TOUGHMAC E [Concomitant]
     Indication: PROPHYLAXIS
     Route: 048
     Dates: start: 20100209, end: 20101010
  5. EXJADE [Concomitant]
     Indication: HAEMOCHROMATOSIS
     Route: 048
     Dates: start: 20100717, end: 20100912
  6. NAUZELIN [Concomitant]
     Indication: PROPHYLAXIS
     Route: 048
     Dates: start: 20100729, end: 20100919
  7. RED BLOOD CELL TRANSFUSION [Concomitant]
     Route: 065

REACTIONS (1)
  - SEPSIS [None]
